FAERS Safety Report 4530633-3 (Version None)
Quarter: 2004Q4

REPORT INFORMATION
  Report Type: 
  Country: None (occurrence: None)
  Receive Date: 20041217
  Receipt Date: 20041209
  Transmission Date: 20050328
  Serious: Yes (Hospitalization)
  Sender: FDA-Public Use
  Company Number: FR-ABBOTT-04P-056-0283043-00

PATIENT
  Age: 67 Year
  Sex: Female

DRUGS (5)
  1. ZECLAR TABLETS [Suspect]
     Indication: NASOPHARYNGITIS
     Route: 048
     Dates: start: 20040925, end: 20040928
  2. PHOLCODINE [Suspect]
     Indication: COUGH
     Route: 048
     Dates: start: 20040925, end: 20040928
  3. ATORVASTATINE [Concomitant]
     Indication: HYPERCHOLESTEROLAEMIA
     Route: 048
  4. GLICLAZIDE [Concomitant]
     Indication: DIABETES MELLITUS
     Route: 048
  5. TROXERUTINE [Concomitant]
     Indication: RESPIRATORY DISORDER
     Route: 048

REACTIONS (1)
  - CUTANEOUS VASCULITIS [None]
